FAERS Safety Report 7363724-2 (Version None)
Quarter: 2011Q1

REPORT INFORMATION
  Report Type: 
  Country: None (occurrence: None)
  Receive Date: 20110321
  Receipt Date: 20110311
  Transmission Date: 20110831
  Serious: Yes (Other)
  Sender: FDA-Public Use
  Company Number: US-JNJFOC-20110306138

PATIENT
  Age: 55 Year
  Sex: Female

DRUGS (2)
  1. INVEGA [Suspect]
     Indication: POST-TRAUMATIC STRESS DISORDER
     Route: 048
  2. INVEGA [Suspect]
     Route: 048

REACTIONS (4)
  - NIPPLE EXUDATE BLOODY [None]
  - BLOOD PROLACTIN INCREASED [None]
  - GALACTORRHOEA [None]
  - OFF LABEL USE [None]
